FAERS Safety Report 12592875 (Version 4)
Quarter: 2016Q4

REPORT INFORMATION
  Report Type: Spontaneous
  Country: JP (occurrence: JP)
  Receive Date: 20160726
  Receipt Date: 20161110
  Transmission Date: 20170207
  Serious: Yes (Hospitalization, Other)
  Sender: FDA-Public Use
  Company Number: JP-JNJFOC-20160611329

PATIENT
  Sex: Female

DRUGS (5)
  1. LYRICA [Suspect]
     Active Substance: PREGABALIN
     Indication: CENTRAL PAIN SYNDROME
     Route: 048
     Dates: start: 20130603, end: 20160615
  2. TRAMAL OD [Suspect]
     Active Substance: TRAMADOL
     Indication: CENTRAL PAIN SYNDROME
     Route: 048
     Dates: start: 20151201, end: 20160615
  3. TRAMCET [Suspect]
     Active Substance: ACETAMINOPHEN\TRAMADOL
     Indication: PRODUCT USED FOR UNKNOWN INDICATION
     Route: 065
     Dates: start: 201312, end: 20151201
  4. LEXOTAN [Suspect]
     Active Substance: BROMAZEPAM
     Indication: CENTRAL PAIN SYNDROME
     Route: 048
     Dates: start: 201111, end: 20160615
  5. RIVOTRIL [Suspect]
     Active Substance: CLONAZEPAM
     Indication: CENTRAL PAIN SYNDROME
     Route: 048
     Dates: start: 201111, end: 20160615

REACTIONS (4)
  - Somnolence [Unknown]
  - Injury [Unknown]
  - Dizziness [Unknown]
  - Fall [Unknown]

NARRATIVE: CASE EVENT DATE: 2014
